FAERS Safety Report 6698198-8 (Version None)
Quarter: 2010Q2

REPORT INFORMATION
  Report Type: 
  Country: None (occurrence: None)
  Receive Date: 20100427
  Receipt Date: 20100329
  Transmission Date: 20101027
  Serious: Yes (Death, Life-Threatening, Hospitalization, Other)
  Sender: FDA-Public Use
  Company Number: IT-BAYER-200817261GPV

PATIENT

DRUGS (5)
  1. CAMPATH [Suspect]
     Indication: PERIPHERAL T-CELL LYMPHOMA UNSPECIFIED
     Dosage: 1 COURSE OF C-CHOP
     Dates: start: 20071003
  2. PREDNISONE TAB [Suspect]
     Indication: PERIPHERAL T-CELL LYMPHOMA UNSPECIFIED
     Dosage: 1 COURSE OF C-CHOP
     Dates: start: 20071003
  3. CYCLOPHOSPHAMIDE [Suspect]
     Indication: PERIPHERAL T-CELL LYMPHOMA UNSPECIFIED
     Dosage: 1 COURSE OF C-CHOP
     Dates: start: 20071003
  4. ADRIAMYCIN PFS [Suspect]
     Indication: PERIPHERAL T-CELL LYMPHOMA UNSPECIFIED
     Dosage: 1 COURSE OF C-CHOP
     Dates: start: 20071003
  5. VINCRISTINE [Suspect]
     Indication: PERIPHERAL T-CELL LYMPHOMA UNSPECIFIED
     Dosage: 1 COURSE OF C-CHOP
     Dates: start: 20071003

REACTIONS (8)
  - ACUTE PULMONARY OEDEMA [None]
  - ASTHENIA [None]
  - CAECITIS [None]
  - CYTOMEGALOVIRUS INFECTION [None]
  - NAUSEA [None]
  - PERIPHERAL T-CELL LYMPHOMA UNSPECIFIED [None]
  - PYREXIA [None]
  - VOMITING [None]
